FAERS Safety Report 13861926 (Version 4)
Quarter: 2018Q1

REPORT INFORMATION
  Report Type: Report from Study
  Country: PL (occurrence: PL)
  Receive Date: 20170811
  Receipt Date: 20180112
  Transmission Date: 20180508
  Serious: Yes (Hospitalization, Other)
  Sender: FDA-Public Use
  Company Number: PL-ACTELION-A-US2017-157626

PATIENT
  Age: 67 Year
  Sex: Female

DRUGS (2)
  1. VENTAVIS [Suspect]
     Active Substance: ILOPROST
     Dosage: UNK
     Route: 055
  2. VENTAVIS [Suspect]
     Active Substance: ILOPROST
     Indication: PULMONARY ARTERIAL HYPERTENSION
     Dosage: 5 MCG, 6ID
     Route: 055
     Dates: start: 20160822

REACTIONS (14)
  - Bile duct stenosis [Unknown]
  - Gallbladder neoplasm [Unknown]
  - Pancreatic neoplasm [Unknown]
  - Somnolence [Unknown]
  - Pancreatic calcification [Unknown]
  - Hepatic neoplasm [Unknown]
  - Abdominal pain upper [Unknown]
  - Biliary neoplasm [Unknown]
  - Decreased appetite [Unknown]
  - Yellow skin [Recovered/Resolved]
  - Bile duct obstruction [Unknown]
  - Underdose [Unknown]
  - Weight decreased [Unknown]
  - Inappropriate schedule of drug administration [Unknown]

NARRATIVE: CASE EVENT DATE: 20170714
